FAERS Safety Report 8496283-1 (Version None)
Quarter: 2012Q3

REPORT INFORMATION
  Report Type: 
  Country: None (occurrence: None)
  Receive Date: 20120709
  Receipt Date: 20120625
  Transmission Date: 20120928
  Serious: No
  Sender: FDA-Public Use
  Company Number: US-ASTRAZENECA-2012SE42927

PATIENT
  Sex: Male

DRUGS (2)
  1. SYMBICORT [Suspect]
     Route: 055
  2. PROAIR HFA [Concomitant]

REACTIONS (7)
  - PAIN [None]
  - DYSPNOEA [None]
  - HEADACHE [None]
  - GLOSSODYNIA [None]
  - HYPOTENSION [None]
  - BLOOD PRESSURE DECREASED [None]
  - OROPHARYNGEAL PAIN [None]
